FAERS Safety Report 4312625-2 (Version None)
Quarter: 2004Q1

REPORT INFORMATION
  Report Type: 
  Country: None (occurrence: None)
  Receive Date: 20040305
  Receipt Date: 20040226
  Transmission Date: 20041129
  Serious: Yes (Hospitalization)
  Sender: FDA-Public Use
  Company Number: WAES 0403USA00051

PATIENT
  Age: 70 Year
  Sex: Male

DRUGS (3)
  1. ALLOPURINOL [Concomitant]
  2. DICLOFENAC SODIUM [Concomitant]
  3. COZAAR [Suspect]
     Route: 048

REACTIONS (2)
  - CHROMATURIA [None]
  - RHABDOMYOLYSIS [None]
